FAERS Safety Report 13842080 (Version 5)
Quarter: 2018Q1

REPORT INFORMATION
  Report Type: Report from Study
  Country: US (occurrence: US)
  Receive Date: 20170807
  Receipt Date: 20180202
  Transmission Date: 20180508
  Serious: Yes (Hospitalization)
  Sender: FDA-Public Use
  Company Number: PHHO2017US011472

PATIENT
  Age: 15 Year
  Sex: Male
  Weight: 74.8 kg

DRUGS (8)
  1. DEXAMETHASONE. [Suspect]
     Active Substance: DEXAMETHASONE
     Indication: ACUTE LYMPHOCYTIC LEUKAEMIA
     Dosage: 9.5 MG, ONCE/SINGLE
     Route: 048
     Dates: start: 20170224, end: 20170310
  2. METHOTREXATE. [Concomitant]
     Active Substance: METHOTREXATE
     Indication: ACUTE LYMPHOCYTIC LEUKAEMIA
     Dosage: 15 MG, DAY 1 AND DAY 29
     Route: 037
     Dates: start: 20161007
  3. METHOTREXATE. [Concomitant]
     Active Substance: METHOTREXATE
     Dosage: 226.75 MG, ONCE/SINGLE
     Route: 042
     Dates: start: 20170516
  4. METHOTREXATE. [Concomitant]
     Active Substance: METHOTREXATE
     Dosage: 37.5 MG, QW
     Route: 048
     Dates: start: 20170808
  5. INC424A [Suspect]
     Active Substance: RUXOLITINIB
     Indication: ACUTE LYMPHOCYTIC LEUKAEMIA
     Dosage: 75 MG, BID
     Route: 048
     Dates: start: 20161007
  6. VINCRISTINE [Concomitant]
     Active Substance: VINCRISTINE
     Indication: ACUTE LYMPHOCYTIC LEUKAEMIA
     Dosage: 2 MG, ONCE/SINGLE
     Route: 042
     Dates: start: 20161118
  7. PEGASPARGASE [Concomitant]
     Active Substance: PEGASPARGASE
     Indication: ACUTE LYMPHOCYTIC LEUKAEMIA
     Dosage: 4725 IU, DAY 2 AND DAY 22
     Route: 042
     Dates: start: 20160824, end: 20170609
  8. PREDNISONE. [Suspect]
     Active Substance: PREDNISONE
     Indication: ACUTE LYMPHOCYTIC LEUKAEMIA
     Dosage: 60 MG, QD
     Route: 048
     Dates: start: 20160919

REACTIONS (2)
  - Osteomyelitis [Recovered/Resolved with Sequelae]
  - Osteomyelitis [Recovered/Resolved with Sequelae]

NARRATIVE: CASE EVENT DATE: 20170725
